FAERS Safety Report 10003701 (Version 1)
Quarter: 2014Q1

REPORT INFORMATION
  Report Type: Spontaneous
  Country: US (occurrence: US)
  Receive Date: 20140312
  Receipt Date: 20140312
  Transmission Date: 20141002
  Serious: Yes (Hospitalization, Disabling)
  Sender: FDA-Public Use
  Company Number: PHEH2014US004761

PATIENT
  Sex: Male

DRUGS (14)
  1. DIOVAN [Suspect]
     Dosage: 40 MG, BID
     Dates: start: 201304
  2. DILTIAZEM [Concomitant]
     Dosage: 120 UG, QD
  3. ECOTRIN [Concomitant]
     Dosage: 81 MG, UNK
  4. ATORVASTATIN [Concomitant]
  5. LIPITOR [Concomitant]
     Dosage: 20 MG, QD
  6. PERFOROMIST [Concomitant]
     Dosage: 20 UG, UNK
  7. BUDESONIDE [Concomitant]
     Dosage: 1 DF, BID
  8. SPIRIVA [Concomitant]
     Dosage: 18 UG, UNK
  9. PREDNISONE [Concomitant]
     Dosage: 2.5 MG, UNK
  10. CLOTRIMAZOLE [Concomitant]
     Dosage: 10 MG, UNK
  11. CLONAZEPAM [Concomitant]
     Dosage: 0.55 MG, UNK
  12. VENTOLIN HFA [Concomitant]
     Dosage: UNK UKN, UNK
  13. GAMUNEX C [Concomitant]
     Indication: IMMUNODEFICIENCY COMMON VARIABLE
  14. MULTI-VIT [Concomitant]
     Dosage: UNK UKN, UNK

REACTIONS (6)
  - Chronic obstructive pulmonary disease [Unknown]
  - Emphysema [Unknown]
  - Bronchitis [Unknown]
  - Dyspnoea [Unknown]
  - Stress [Unknown]
  - Anxiety [Unknown]
